FAERS Safety Report 19774676 (Version 2)
Quarter: 2022Q3

REPORT INFORMATION
  Report Type: Report from Study
  Country: US (occurrence: US)
  Receive Date: 20210901
  Receipt Date: 20220920
  Transmission Date: 20221027
  Serious: No
  Sender: FDA-Public Use
  Company Number: US-THERAPEUTICSMD-2021TMD02180

PATIENT
  Sex: Female

DRUGS (2)
  1. ANNOVERA [Suspect]
     Active Substance: ETHINYL ESTRADIOL\SEGESTERONE ACETATE
     Dosage: UNK
  2. ANNOVERA [Suspect]
     Active Substance: ETHINYL ESTRADIOL\SEGESTERONE ACETATE
     Dosage: SOMETIMES LEAVES ANNOVERA IN ALL MONTH

REACTIONS (2)
  - Off label use [Unknown]
  - Sensation of foreign body [Not Recovered/Not Resolved]
